FAERS Safety Report 17565338 (Version 1)
Quarter: 2020Q1

REPORT INFORMATION
  Report Type: Spontaneous
  Country: US (occurrence: US)
  Receive Date: 20200313
  Receipt Date: 20200313
  Transmission Date: 20200409
  Serious: Yes (Other)
  Sender: FDA-Public Use
  Company Number: None

PATIENT
  Age: 71 Year
  Sex: Male
  Weight: 85 kg

DRUGS (2)
  1. ZOLPIDEM [Suspect]
     Active Substance: ZOLPIDEM TARTRATE
     Dosage: ?          OTHER FREQUENCY:QHS;?
     Route: 048
     Dates: start: 20200101, end: 20200207
  2. ZOLPIDEM [Suspect]
     Active Substance: ZOLPIDEM TARTRATE
     Dosage: ?          OTHER FREQUENCY:QHS;?
     Route: 048
     Dates: start: 20191201, end: 20200101

REACTIONS (3)
  - Somnolence [None]
  - Somnambulism [None]
  - Product substitution issue [None]

NARRATIVE: CASE EVENT DATE: 20200207
